FAERS Safety Report 16393044 (Version 3)
Quarter: 2020Q2

REPORT INFORMATION
  Report Type: Report from Study
  Country: None (occurrence: JP)
  Receive Date: 20190605
  Receipt Date: 20200403
  Transmission Date: 20200713
  Serious: Yes (Life-Threatening)
  Sender: FDA-Public Use
  Company Number: JP-ABBVIE-19S-087-2808912-00

PATIENT
  Age: 54 Year
  Sex: Male
  Weight: 82.1 kg

DRUGS (12)
  1. LEVOCABASTINE HYDROCHLORIDE [Concomitant]
     Active Substance: LEVOCABASTINE HYDROCHLORIDE
     Indication: SEASONAL ALLERGY
     Route: 047
     Dates: start: 20140227, end: 20140520
  2. BARIUM SULFATE [Concomitant]
     Active Substance: BARIUM SULFATE
     Indication: X-RAY WITH CONTRAST UPPER GASTROINTESTINAL TRACT
     Dosage: PROPER DOSE?PRN
     Route: 048
     Dates: start: 20140309, end: 20140309
  3. LOXOPROFEN SODIUM HYDRATE [Concomitant]
     Active Substance: LOXOPROFEN SODIUM DIHYDRATE
     Indication: HEADACHE
     Route: 048
     Dates: start: 20140312, end: 20140526
  4. GLYCINE. [Concomitant]
     Active Substance: GLYCINE
     Indication: CHRONIC HEPATITIS C
     Dosage: 1 TO 3 TIMES/WEEK
     Route: 040
     Dates: start: 20050101, end: 20140605
  5. VIEKIRAX [Suspect]
     Active Substance: OMBITASVIR\PARITAPREVIR\RITONAVIR
     Indication: PRODUCT USED FOR UNKNOWN INDICATION
     Route: 048
     Dates: start: 20140227, end: 20140521
  6. URSODEOXYCHOLIC ACID [Concomitant]
     Active Substance: URSODIOL
     Indication: CHRONIC HEPATITIS C
     Route: 048
     Dates: start: 20050101, end: 20140605
  7. BEPOTASTINE BESILATE [Concomitant]
     Active Substance: BEPOTASTINE BESYLATE
     Indication: SEASONAL ALLERGY
     Route: 048
     Dates: start: 20140227, end: 20140520
  8. MOMETASONE FUROATE HYDRATE [Concomitant]
     Active Substance: MOMETASONE FUROATE MONOHYDRATE
     Indication: SEASONAL ALLERGY
     Dosage: PROPER DOSE?PRN
     Route: 045
     Dates: start: 20140227, end: 20140520
  9. SENNOSIDES. [Concomitant]
     Active Substance: SENNOSIDES
     Indication: X-RAY WITH CONTRAST UPPER GASTROINTESTINAL TRACT
     Dosage: PRN
     Route: 048
     Dates: start: 20140309, end: 20140309
  10. MONOAMMONIUM GLYCYRRHIZINATE [Concomitant]
     Active Substance: AMMONIUM GLYCYRRHIZATE
     Indication: CHRONIC HEPATITIS C
     Dosage: 1 TO 3 TIMES/WEEK
     Route: 040
     Dates: start: 20050101, end: 20140605
  11. PARACETAMOL [Concomitant]
     Active Substance: ACETAMINOPHEN
     Indication: HEADACHE
     Dosage: PRN
     Route: 048
     Dates: start: 20140306, end: 20140312
  12. L-CYSTEINE HYDROCHLORIDE [Concomitant]
     Active Substance: CYSTEINE HYDROCHLORIDE
     Indication: CHRONIC HEPATITIS C
     Dosage: 1 TO 3 TIMES/WEEK
     Route: 040
     Dates: start: 20050101, end: 20140605

REACTIONS (1)
  - Gastric cancer [Recovered/Resolved]

NARRATIVE: CASE EVENT DATE: 20180601
